FAERS Safety Report 9272498 (Version 2)
Quarter: 2013Q2

REPORT INFORMATION
  Report Type: Spontaneous
  Country: PT (occurrence: PT)
  Receive Date: 20130506
  Receipt Date: 20130620
  Transmission Date: 20140414
  Serious: Yes (Hospitalization)
  Sender: FDA-Public Use
  Company Number: PT-ASTRAZENECA-2013SE29067

PATIENT
  Age: 949 Month
  Sex: Male
  Weight: 75 kg

DRUGS (12)
  1. VISACOR [Suspect]
     Indication: DYSLIPIDAEMIA
     Route: 048
     Dates: start: 201204, end: 2012
  2. VISACOR [Suspect]
     Indication: DYSLIPIDAEMIA
     Route: 048
     Dates: start: 201207, end: 20120901
  3. VISACOR [Suspect]
     Indication: DYSLIPIDAEMIA
     Route: 048
     Dates: start: 20120905
  4. AGGRENOX [Concomitant]
     Indication: THROMBOSIS PROPHYLAXIS
     Dosage: 25 MG + 200 MG 2/DAY UD (UNIT DOSE)
     Route: 048
  5. VASTAREL LM [Concomitant]
     Indication: CARDIOVASCULAR INSUFFICIENCY
     Route: 048
  6. OMEPRAZOL [Concomitant]
     Indication: PROPHYLAXIS AGAINST GASTROINTESTINAL ULCER
     Route: 048
  7. SERTRALINA [Concomitant]
     Route: 048
  8. LEXOTAN [Concomitant]
     Indication: INSOMNIA
     Dosage: 1 TABLET + HALF TABLET/DAY
     Route: 048
  9. ASPIRINA GR 100MG COMPRIMIDOS GASTRORRESISTENTES [Concomitant]
     Indication: THROMBOSIS PROPHYLAXIS
     Route: 048
  10. ALFUZOSINA [Concomitant]
     Indication: BENIGN PROSTATIC HYPERPLASIA
     Route: 048
  11. ZOLPIDEM [Concomitant]
     Indication: INSOMNIA
     Dosage: HALF TABLET/DAY
     Route: 048
  12. SINVASTATINA [Concomitant]
     Indication: DYSLIPIDAEMIA
     Route: 048

REACTIONS (2)
  - Diarrhoea [Recovered/Resolved]
  - Atypical pneumonia [Recovered/Resolved]
